FAERS Safety Report 7464283-6 (Version None)
Quarter: 2011Q2

REPORT INFORMATION
  Report Type: 
  Country: None (occurrence: None)
  Receive Date: 20110509
  Receipt Date: 20110427
  Transmission Date: 20111010
  Serious: Yes (Hospitalization)
  Sender: FDA-Public Use
  Company Number: DE-BIOGENIDEC-2011BI001410

PATIENT
  Age: 39 Year
  Sex: Female
  Weight: 63 kg

DRUGS (5)
  1. CLINDAMYCIN [Concomitant]
  2. GABAPENTIN [Concomitant]
  3. BACLOFEN [Concomitant]
  4. TYSABRI [Suspect]
     Indication: MULTIPLE SCLEROSIS
     Route: 042
     Dates: start: 20070831
  5. OPIPRAMOL [Concomitant]
     Indication: ANXIOLYTIC THERAPY
     Dates: start: 20101025

REACTIONS (1)
  - ADVERSE DRUG REACTION [None]
